FAERS Safety Report 22264031 (Version 1)
Quarter: 2023Q2

REPORT INFORMATION
  Report Type: Spontaneous
  Country: US (occurrence: US)
  Receive Date: 20230428
  Receipt Date: 20230428
  Transmission Date: 20230722
  Serious: Yes (Hospitalization)
  Sender: FDA-Public Use
  Company Number: US-MYLANLABS-2023M1043028

PATIENT
  Age: 16 Year
  Sex: Female

DRUGS (8)
  1. BUTENAFINE HYDROCHLORIDE [Suspect]
     Active Substance: BUTENAFINE HYDROCHLORIDE
     Indication: Antifungal treatment
     Dosage: UNK
     Route: 065
  2. BUTENAFINE HYDROCHLORIDE [Suspect]
     Active Substance: BUTENAFINE HYDROCHLORIDE
     Indication: Rash pruritic
  3. TERBINAFINE [Suspect]
     Active Substance: TERBINAFINE
     Indication: Antifungal treatment
     Dosage: 250 MILLIGRAM, QD
     Route: 048
  4. TERBINAFINE [Suspect]
     Active Substance: TERBINAFINE
     Indication: Rash pruritic
  5. TERBINAFINE [Suspect]
     Active Substance: TERBINAFINE
     Indication: Antifungal treatment
     Dosage: UNK, BID, CREAM
     Route: 061
  6. TERBINAFINE [Suspect]
     Active Substance: TERBINAFINE
     Indication: Rash pruritic
  7. CLOTRIMAZOLE [Suspect]
     Active Substance: CLOTRIMAZOLE
     Indication: Antifungal treatment
     Dosage: UNK
     Route: 061
  8. CLOTRIMAZOLE [Suspect]
     Active Substance: CLOTRIMAZOLE
     Indication: Rash pruritic

REACTIONS (1)
  - Drug ineffective [Unknown]
